FAERS Safety Report 8030747-X (Version None)
Quarter: 2012Q1

REPORT INFORMATION
  Report Type: 
  Country: None (occurrence: None)
  Receive Date: 20120109
  Receipt Date: 20120103
  Transmission Date: 20120608
  Serious: Yes (Death, Life-Threatening, Hospitalization)
  Sender: FDA-Public Use
  Company Number: US-ELI_LILLY_AND_COMPANY-US201109006352

PATIENT
  Sex: Female
  Weight: 63.5 kg

DRUGS (13)
  1. VITAMIN B-12 [Concomitant]
     Indication: SUPPLEMENTATION THERAPY
     Dosage: UNK
     Dates: start: 20110721
  2. ASPIRIN [Concomitant]
     Indication: HYPERTENSION
     Dosage: UNK
     Dates: start: 20080121
  3. FOLIC ACID [Concomitant]
     Indication: SUPPLEMENTATION THERAPY
     Dosage: UNK
     Dates: start: 20110621
  4. ALOXI [Concomitant]
     Indication: PROPHYLAXIS
     Dosage: UNK
     Dates: start: 20110801
  5. HYZAAR [Concomitant]
     Indication: HYPERTENSION
     Dosage: UNK
     Dates: start: 20071221
  6. ZOLPIDEM [Concomitant]
     Indication: INSOMNIA
     Dosage: UNK
  7. CARBOPLATIN [Suspect]
     Indication: NON-SMALL CELL LUNG CANCER
     Dosage: 6 AUC, DAY 1 EVERY 21 DAYS
     Route: 042
     Dates: start: 20110801, end: 20110919
  8. NORVASC [Concomitant]
     Indication: HYPERTENSION
     Dosage: UNK
     Dates: start: 20071221
  9. FAMOTIDINE [Concomitant]
     Indication: GASTROOESOPHAGEAL REFLUX DISEASE
     Dosage: UNK
     Dates: start: 20110614
  10. XANAX [Concomitant]
     Indication: ANXIETY
     Dosage: UNK
  11. EMEND [Concomitant]
     Indication: PROPHYLAXIS
     Dosage: UNK
     Dates: start: 20110801
  12. BEVACIZUMAB [Suspect]
     Indication: NON-SMALL CELL LUNG CANCER
     Dosage: 15 MG/KG, DAY 1 EVERY 21 DAYS
     Route: 042
     Dates: start: 20110801, end: 20110919
  13. PEMETREXED [Suspect]
     Indication: NON-SMALL CELL LUNG CANCER
     Dosage: 500 MG/M2, DAY1 EVERY 21 DAYS
     Route: 042
     Dates: start: 20110801, end: 20110919

REACTIONS (8)
  - DEATH [None]
  - VOMITING [None]
  - FISTULA [None]
  - PNEUMONIA ASPIRATION [None]
  - HYPOKALAEMIA [None]
  - TRACHEO-OESOPHAGEAL FISTULA [None]
  - HYPOPHOSPHATAEMIA [None]
  - INCREASED UPPER AIRWAY SECRETION [None]
